FAERS Safety Report 15839002 (Version 2)
Quarter: 2019Q1

REPORT INFORMATION
  Report Type: Report from Study
  Country: GT (occurrence: GT)
  Receive Date: 20190117
  Receipt Date: 20190201
  Transmission Date: 20190417
  Serious: Yes (Other)
  Sender: FDA-Public Use
  Company Number: PHHY2019GT006463

PATIENT
  Sex: Female
  Weight: 74.3 kg

DRUGS (3)
  1. EXFORGE HCT [Suspect]
     Active Substance: AMLODIPINE BESYLATE\HYDROCHLOROTHIAZIDE\VALSARTAN
     Indication: PRODUCT USED FOR UNKNOWN INDICATION
     Dosage: 1 DF, QD (320 MG VALSARTAN, 10 MG AMLODIPINE, 25 MG HYDROCHLOROTHIAZIDE)
     Route: 048
  2. EXFORGE [Suspect]
     Active Substance: AMLODIPINE BESYLATE\VALSARTAN
     Indication: PRODUCT USED FOR UNKNOWN INDICATION
     Dosage: (160 MG AS REPORTED), UNK
     Route: 065
  3. GALVUS MET [Suspect]
     Active Substance: METFORMIN HYDROCHLORIDE\VILDAGLIPTIN
     Indication: DIABETES MELLITUS
     Dosage: 1 DF, BID (50 MG VILDAGLIPTIN, 1000 MG METFORMIN)
     Route: 048

REACTIONS (3)
  - Diabetes mellitus [Unknown]
  - Blood pressure increased [Unknown]
  - Foot fracture [Recovering/Resolving]
